FAERS Safety Report 15584085 (Version 3)
Quarter: 2019Q3

REPORT INFORMATION
  Report Type: Spontaneous
  Country: JP (occurrence: JP)
  Receive Date: 20181104
  Receipt Date: 20190927
  Transmission Date: 20191004
  Serious: Yes (Other)
  Sender: FDA-Public Use
  Company Number: JP-009507513-1704JPN001230J

PATIENT
  Age: 73 Year
  Sex: Female
  Weight: 67 kg

DRUGS (3)
  1. GRAZYNA TABLETS 50MG [Suspect]
     Active Substance: GRAZOPREVIR
     Dosage: 50 MILLIGRAM, QD
     Route: 048
     Dates: start: 20170406, end: 20170503
  2. ERELSA TABLETS 50MG [Suspect]
     Active Substance: ELBASVIR
     Indication: CHRONIC HEPATITIS C
     Dosage: 50 MILLIGRAM, QD
     Route: 048
     Dates: start: 20170209, end: 20170503
  3. GRAZYNA TABLETS 50MG [Suspect]
     Active Substance: GRAZOPREVIR
     Indication: CHRONIC HEPATITIS C
     Dosage: 100 MILLIGRAM, QD
     Route: 048
     Dates: start: 20170209, end: 20170405

REACTIONS (2)
  - Chronic hepatitis [Recovered/Resolved]
  - Underdose [Unknown]

NARRATIVE: CASE EVENT DATE: 20170405
